FAERS Safety Report 6152611-3 (Version None)
Quarter: 2009Q2

REPORT INFORMATION
  Report Type: 
  Country: None (occurrence: None)
  Receive Date: 20090409
  Receipt Date: 20090402
  Transmission Date: 20091009
  Serious: Yes (Death)
  Sender: FDA-Public Use
  Company Number: 2009002876

PATIENT
  Age: 62 Year
  Sex: Male
  Weight: 127.9144 kg

DRUGS (15)
  1. TREANDA [Suspect]
     Indication: NON-HODGKIN'S LYMPHOMA
     Dosage: 90 MG/M2, CYCLE 1, DOSE
     Dates: start: 20090401, end: 20090401
  2. VELCADE [Suspect]
     Indication: NON-HODGKIN'S LYMPHOMA
     Dosage: 1.6 MG/M2, CYCLE 1, DOSE
     Dates: start: 20090401, end: 20090401
  3. RITUXAN [Concomitant]
  4. XOPENEX [Concomitant]
  5. CARDIZEM CD [Concomitant]
  6. ATENOLOL [Concomitant]
  7. LASIX [Concomitant]
  8. LEVOTHYROXINE SODIUM [Concomitant]
  9. PROTONX (PANTOPRAZOLE) [Concomitant]
  10. ALAVERT [Concomitant]
  11. CORTAID (HYDROCORTISONE) [Concomitant]
  12. SIMVASTATIN [Concomitant]
  13. WARFARIN SODIUM [Concomitant]
  14. ALLOPURINOL [Concomitant]
  15. AZMACORT [Concomitant]

REACTIONS (5)
  - CARDIAC ARREST [None]
  - MYDRIASIS [None]
  - NO THERAPEUTIC RESPONSE [None]
  - PUPIL FIXED [None]
  - RESPIRATORY ARREST [None]
